FAERS Safety Report 8396478-1 (Version None)
Quarter: 2012Q1

REPORT INFORMATION
  Report Type: 
  Country: None (occurrence: None)
  Receive Date: 20120323
  Receipt Date: 20110428
  Transmission Date: 20120608
  Serious: Yes (Other)
  Sender: FDA-Public Use
  Company Number: 163-21880-11033645

PATIENT
  Age: 84 Year
  Sex: Male
  Weight: 89.8 kg

DRUGS (2)
  1. REVLIMID [Suspect]
     Indication: MULTIPLE MYELOMA
     Dosage: 10 MG, DAILY FOR 28 DAYS, PO    5 MG, 1 IN 1 D, PO
     Route: 048
     Dates: start: 20110501
  2. REVLIMID [Suspect]
     Indication: MULTIPLE MYELOMA
     Dosage: 10 MG, DAILY FOR 28 DAYS, PO    5 MG, 1 IN 1 D, PO
     Route: 048
     Dates: start: 20101029

REACTIONS (2)
  - ANAEMIA [None]
  - FULL BLOOD COUNT DECREASED [None]
